FAERS Safety Report 14870945 (Version 1)
Quarter: 2018Q2

REPORT INFORMATION
  Report Type: Spontaneous
  Country: US (occurrence: US)
  Receive Date: 20180509
  Receipt Date: 20180509
  Transmission Date: 20180711
  Serious: No
  Sender: FDA-Public Use
  Company Number: US-GLAXOSMITHKLINE-US2018GSK081295

PATIENT
  Sex: Female

DRUGS (1)
  1. NUCALA [Suspect]
     Active Substance: MEPOLIZUMAB
     Indication: VASCULITIS
     Route: 042

REACTIONS (5)
  - Drug ineffective [Unknown]
  - Off label use [Unknown]
  - Feeling abnormal [Unknown]
  - Device malfunction [Unknown]
  - Product use in unapproved indication [Unknown]
